FAERS Safety Report 7623506-0 (Version None)
Quarter: 2011Q3

REPORT INFORMATION
  Report Type: 
  Country: None (occurrence: None)
  Receive Date: 20110720
  Receipt Date: 20110712
  Transmission Date: 20111222
  Serious: Yes (Hospitalization, Other)
  Sender: FDA-Public Use
  Company Number: US-JNJFOC-20110705035

PATIENT
  Sex: Female

DRUGS (1)
  1. INVEGA [Suspect]
     Indication: PRODUCT USED FOR UNKNOWN INDICATION
     Route: 048
     Dates: end: 20110701

REACTIONS (4)
  - HOSPITALISATION [None]
  - PAIN [None]
  - MUSCLE RIGIDITY [None]
  - GAIT DISTURBANCE [None]
